FAERS Safety Report 12790002 (Version 2)
Quarter: 2018Q2

REPORT INFORMATION
  Report Type: Spontaneous
  Country: US (occurrence: US)
  Receive Date: 20160928
  Receipt Date: 20180411
  Transmission Date: 20180711
  Serious: Yes (Hospitalization, Other)
  Sender: FDA-Public Use
  Company Number: US-DSJP-DSU-2016-122288

PATIENT

DRUGS (1)
  1. BENICAR [Suspect]
     Active Substance: OLMESARTAN MEDOXOMIL
     Indication: HYPERTENSION
     Dosage: 40 MG, QD
     Route: 048
     Dates: start: 20130101, end: 20140611

REACTIONS (17)
  - Whipple^s disease [Unknown]
  - Blood alkaline phosphatase increased [Unknown]
  - Clostridium test positive [Recovered/Resolved]
  - Lymphoma [Unknown]
  - Coeliac disease [Unknown]
  - Diverticulum intestinal [Not Recovered/Not Resolved]
  - Hiatus hernia [Not Recovered/Not Resolved]
  - Acute kidney injury [Unknown]
  - Sprue-like enteropathy [Recovering/Resolving]
  - Gastrointestinal tract adenoma [Recovered/Resolved]
  - Hepatic lesion [Unknown]
  - Haemorrhoids [Not Recovered/Not Resolved]
  - Hepatic steatosis [Unknown]
  - Anaemia [Unknown]
  - Pancreatic failure [Unknown]
  - Autoimmune disorder [Unknown]
  - Polyp [Recovered/Resolved]

NARRATIVE: CASE EVENT DATE: 20130501
